FAERS Safety Report 6595855-9 (Version None)
Quarter: 2010Q1

REPORT INFORMATION
  Report Type: 
  Country: None (occurrence: None)
  Receive Date: 20100204
  Receipt Date: 20091028
  Transmission Date: 20100710
  Serious: No
  Sender: FDA-Public Use
  Company Number: 2009-09240

PATIENT
  Age: 58 Year
  Sex: Male

DRUGS (1)
  1. RAPAFLO [Suspect]
     Indication: BENIGN PROSTATIC HYPERPLASIA
     Dosage: TOOK 1 CAPSULE AT BEDTIME, SINGLE USE ONLY, ORAL
     Route: 048
     Dates: start: 20091023, end: 20091023

REACTIONS (2)
  - HEART RATE INCREASED [None]
  - INSOMNIA [None]
